FAERS Safety Report 7351488-8 (Version None)
Quarter: 2011Q1

REPORT INFORMATION
  Report Type: 
  Country: None (occurrence: None)
  Receive Date: 20110314
  Receipt Date: 20110307
  Transmission Date: 20110831
  Serious: Yes (Other)
  Sender: FDA-Public Use
  Company Number: JP-MERCK-1102USA01244

PATIENT
  Age: 79 Year
  Sex: Male

DRUGS (2)
  1. PEPCID [Suspect]
     Route: 065
  2. MIDAZOLAM HCL [Suspect]
     Route: 065

REACTIONS (1)
  - RHABDOMYOLYSIS [None]
